FAERS Safety Report 20315002 (Version 1)
Quarter: 2022Q1

REPORT INFORMATION
  Report Type: Other
  Country: US (occurrence: None)
  Receive Date: 20220110
  Receipt Date: 20220110
  Transmission Date: 20220423
  Serious: Yes (Other)
  Sender: FDA-Public Use
  Company Number: US-ROCHE-2718520

PATIENT
  Age: 44 Year
  Sex: Male

DRUGS (5)
  1. RITUXIMAB [Suspect]
     Active Substance: RITUXIMAB
     Indication: Thrombotic thrombocytopenic purpura
     Route: 065
  2. SULFADIAZINE [Concomitant]
     Active Substance: SULFADIAZINE
  3. CLINDAMYCIN [Concomitant]
     Active Substance: CLINDAMYCIN
  4. PYRIMETHAMINE [Concomitant]
     Active Substance: PYRIMETHAMINE
  5. LEUCOVORIN [Concomitant]
     Active Substance: LEUCOVORIN

REACTIONS (1)
  - Central nervous system infection [Unknown]
